FAERS Safety Report 4626631-1 (Version None)
Quarter: 2005Q1

REPORT INFORMATION
  Report Type: 
  Country: None (occurrence: None)
  Receive Date: 20050330
  Receipt Date: 20050317
  Transmission Date: 20050727
  Serious: Yes (Other)
  Sender: FDA-Public Use
  Company Number: 200510857BCC

PATIENT
  Age: 12 Year
  Sex: Female
  Weight: 47.6277 kg

DRUGS (3)
  1. RID [Suspect]
     Indication: LICE INFESTATION
     Dosage: TOPICAL
     Route: 061
     Dates: end: 20050201
  2. NIX [Suspect]
  3. HEAVY CONDITIONERS [Concomitant]

REACTIONS (1)
  - EYE SWELLING [None]
